FAERS Safety Report 6597706-5 (Version None)
Quarter: 2010Q1

REPORT INFORMATION
  Report Type: 
  Country: None (occurrence: None)
  Receive Date: 20100216
  Receipt Date: 20100209
  Transmission Date: 20100710
  Serious: Yes (Death, Hospitalization)
  Sender: FDA-Public Use
  Company Number: A-CH2010-33891

PATIENT
  Age: 78 Year
  Sex: Male

DRUGS (5)
  1. TRACLEER [Suspect]
     Indication: PULMONARY ARTERIAL HYPERTENSION
     Dosage: 62.5 MG, BID, ORAL; 62.5 MG, QD, ORAL; 31.25 MG, QD, ORAL
     Route: 048
     Dates: start: 20090120, end: 20090127
  2. TRACLEER [Suspect]
     Indication: PULMONARY ARTERIAL HYPERTENSION
     Dosage: 62.5 MG, BID, ORAL; 62.5 MG, QD, ORAL; 31.25 MG, QD, ORAL
     Route: 048
     Dates: start: 20090128, end: 20090325
  3. TRACLEER [Suspect]
     Indication: PULMONARY ARTERIAL HYPERTENSION
     Dosage: 62.5 MG, BID, ORAL; 62.5 MG, QD, ORAL; 31.25 MG, QD, ORAL
     Route: 048
     Dates: start: 20090408, end: 20090708
  4. BERAPROST SODIUM (BERAPROST SODIUM) [Concomitant]
  5. SILDENAFIL CITRATE [Concomitant]

REACTIONS (4)
  - ALANINE AMINOTRANSFERASE INCREASED [None]
  - ASPARTATE AMINOTRANSFERASE INCREASED [None]
  - CARDIAC FAILURE [None]
  - CONDITION AGGRAVATED [None]
